FAERS Safety Report 24229704 (Version 6)
Quarter: 2024Q4

REPORT INFORMATION
  Report Type: Report from Study
  Country: US (occurrence: US)
  Receive Date: 20240820
  Receipt Date: 20241013
  Transmission Date: 20250114
  Serious: Yes (Other)
  Sender: ROCHE
  Company Number: US-ROCHE-10000058821

PATIENT
  Age: 41 Year
  Sex: Male

DRUGS (1)
  1. OCREVUS [Suspect]
     Active Substance: OCRELIZUMAB
     Indication: Primary progressive multiple sclerosis
     Dosage: THE PATIENT^S MOST RECENT DOSE OF OCREVUS WAS ON JUL-2024.
     Route: 065
     Dates: start: 20220823

REACTIONS (1)
  - JC polyomavirus test positive [Recovered/Resolved]
